FAERS Safety Report 4485332-3 (Version None)
Quarter: 2004Q3

REPORT INFORMATION
  Report Type: 
  Country: None (occurrence: None)
  Receive Date: 20040921
  Receipt Date: 20040524
  Transmission Date: 20050211
  Serious: Yes (Hospitalization)
  Sender: FDA-Public Use
  Company Number: 163-20785-04050572

PATIENT
  Age: 62 Year
  Sex: Female

DRUGS (2)
  1. THALOMID [Suspect]
     Indication: MULTIPLE MYELOMA
     Dosage: 50 MG, EVERY OTHER DAY, ORAL
     Route: 048
     Dates: start: 20020326
  2. AREDIA [Suspect]
     Indication: MULTIPLE MYELOMA
     Dosage: 60 MG, INTRAVENOUS
     Route: 042
     Dates: start: 20020326

REACTIONS (2)
  - DIZZINESS [None]
  - HYPERTENSIVE CRISIS [None]
